FAERS Safety Report 19481987 (Version 1)
Quarter: 2021Q2

REPORT INFORMATION
  Report Type: Spontaneous
  Country: US (occurrence: US)
  Receive Date: 20210630
  Receipt Date: 20210630
  Transmission Date: 20210717
  Serious: Yes (Death)
  Sender: FDA-Public Use
  Company Number: None

PATIENT
  Sex: Female

DRUGS (17)
  1. BUPROPN HCL [Concomitant]
     Active Substance: BUPROPION HYDROCHLORIDE
  2. CHHLORTHALID [Concomitant]
  3. LOSARTAN. [Concomitant]
     Active Substance: LOSARTAN
  4. VITAMIN D [Concomitant]
     Active Substance: VITAMIN D NOS
  5. DESVENIAFAX [Concomitant]
  6. TRAZODONE [Concomitant]
     Active Substance: TRAZODONE HYDROCHLORIDE
  7. FLECAINIDE [Concomitant]
     Active Substance: FLECAINIDE
  8. HYDROCHLOROT [Concomitant]
     Active Substance: HYDROCHLOROTHIAZIDE
  9. ESBRIET [Suspect]
     Active Substance: PIRFENIDONE
     Indication: IDIOPATHIC PULMONARY FIBROSIS
     Dosage: ?          OTHER DOSE:2;?
     Route: 048
     Dates: start: 20200729
  10. DONEPEZIL. [Concomitant]
     Active Substance: DONEPEZIL
  11. POT CL MICRO [Concomitant]
  12. METOPROL TAR [Concomitant]
  13. NIFEDIPINE. [Concomitant]
     Active Substance: NIFEDIPINE
  14. BISOPROL FUM [Concomitant]
     Active Substance: BISOPROLOL FUMARATE
  15. SIMVASTATIN. [Concomitant]
     Active Substance: SIMVASTATIN
  16. TRINTELLIX [Concomitant]
     Active Substance: VORTIOXETINE HYDROBROMIDE
  17. ELIQUIS [Concomitant]
     Active Substance: APIXABAN

REACTIONS (1)
  - Death [None]
